FAERS Safety Report 9608927 (Version 1)
Quarter: 2013Q4

REPORT INFORMATION
  Report Type: Spontaneous
  Country: JP (occurrence: JP)
  Receive Date: 20131009
  Receipt Date: 20131009
  Transmission Date: 20140711
  Serious: Yes (Hospitalization)
  Sender: FDA-Public Use
  Company Number: JP-GE HEALTHCARE MEDICAL DIAGNOSTICS-MSTR-PR-1310S-0022

PATIENT
  Sex: Female

DRUGS (2)
  1. METASTRON [Suspect]
     Indication: METASTATIC PAIN
     Dosage: DOSE NOT REPORTED
     Route: 042
     Dates: start: 20130801, end: 20130801
  2. METASTRON [Suspect]
     Indication: THERAPEUTIC PROCEDURE

REACTIONS (1)
  - Pancytopenia [Recovering/Resolving]
